FAERS Safety Report 10368542 (Version 1)
Quarter: 2014Q1

REPORT INFORMATION
  Report Type: Spontaneous
  Country: US (occurrence: None)
  Receive Date: 20140306
  Receipt Date: 20140306
  Transmission Date: 20141002
  Serious: Yes (Hospitalization)
  Sender: FDA-Public Use
  Company Number: 163-21880-13071670

PATIENT
  Age: 44 Year
  Sex: Male
  Weight: 86.18 kg

DRUGS (11)
  1. REVLIMID (LENALIDOMIDE) (15 MILLIGRAM, CAPSULES) [Suspect]
     Indication: PLASMA CELL MYELOMA
     Route: 048
     Dates: start: 20100611
  2. REMERON (MIRTAPINE) [Concomitant]
  3. AMLODIPINE BESYLATE (AMLODIPINE BESILATE) [Concomitant]
  4. AVELOX (MOXIFLOXACIN HYDROCHLORIDE) [Concomitant]
  5. TRAMADOL HCL (TRAMADOL HYDROCHLORIDE) [Concomitant]
  6. SMZ-TMP SS [Concomitant]
  7. GABAPENTIN (GABAPENTIN) [Concomitant]
  8. LORZEPAM (LORZEPAM) [Concomitant]
  9. ACYCLOVIR (ACICLOVIR) (ACICLOVIR) [Concomitant]
  10. CALCIUM CITRATE (CALCIUM CITRATE) [Concomitant]
  11. LANSOPRAZOLE (LANSOPRAZOLE) [Concomitant]

REACTIONS (2)
  - Syncope [None]
  - Cough [None]
